FAERS Safety Report 15324890 (Version 1)
Quarter: 2018Q3

REPORT INFORMATION
  Report Type: Spontaneous
  Country: DE (occurrence: DE)
  Receive Date: 20180828
  Receipt Date: 20180828
  Transmission Date: 20181010
  Serious: Yes (Hospitalization)
  Sender: FDA-Public Use
  Company Number: DE-PURDUE-GBR-2018-0058123

PATIENT
  Age: 75 Year
  Sex: Male

DRUGS (37)
  1. NOVORAPID [Concomitant]
     Active Substance: INSULIN ASPART
     Dosage: NK IE, NACH BZ
  2. DIAZEPAM. [Concomitant]
     Active Substance: DIAZEPAM
     Dosage: 4 DROP, PM 0?0?0?4, TROPFEN)
  3. LEFLUNOMIDE. [Concomitant]
     Active Substance: LEFLUNOMIDE
     Dosage: 20 MG, AM (1?0?0?0)
  4. AMIODARON                          /00133101/ [Concomitant]
     Active Substance: AMIODARONE
     Dosage: 100 MG, AM (1?0?0?0)
  5. XIPAMID [Suspect]
     Active Substance: XIPAMIDE
     Dosage: 10 MG, BID (1?1?0?0)
     Route: 065
  6. LEVEMIR [Concomitant]
     Active Substance: INSULIN DETEMIR
     Dosage: 34 IU, BID (1?0?1?0)
  7. METAMIZOL                          /06276702/ [Concomitant]
     Active Substance: METAMIZOLE
     Dosage: 30 DROP, TID (TROPFEN)
  8. PANTOPRAZOL [Concomitant]
     Active Substance: PANTOPRAZOLE SODIUM
     Dosage: 20 MG, AM (1?0?0?0)
  9. KALINOR                            /00031402/ [Concomitant]
     Active Substance: POTASSIUM CHLORIDE
     Dosage: UNK, BID ( 1?1?0?0)
  10. MOVICOL [Concomitant]
     Active Substance: POLYETHYLENE GLYCOL 3350\POTASSIUM CHLORIDE\SODIUM BICARBONATE\SODIUM CHLORIDE
     Dosage: UNK, BID (1?1?0?0)
  11. MIRTAZAPIN [Concomitant]
     Active Substance: MIRTAZAPINE
     Dosage: 30 MG, PM (0?0?0?1)
  12. SALBUTAMOL [Concomitant]
     Active Substance: ALBUTEROL
     Dosage: UNK (NK MG, BEDARF)
  13. ACC                                /00082801/ [Concomitant]
     Active Substance: ACETYLCYSTEINE
     Dosage: 600 MG, AM ((1?0?0?0))
  14. SULTANOL [Concomitant]
     Active Substance: ALBUTEROL SULFATE
     Dosage: 3 DROP, TID (NK MG, 3?3?3?0, TROPFEN)
     Route: 055
  15. XIPAMID [Suspect]
     Active Substance: XIPAMIDE
     Indication: PRODUCT USED FOR UNKNOWN INDICATION
     Dosage: 40 MG, AM (1?0?0?0)
     Route: 065
  16. TAMSULOSIN [Concomitant]
     Active Substance: TAMSULOSIN
     Dosage: 0.4 MG, DAILY (1?0?0?0)
  17. METAMIZOL                          /06276702/ [Concomitant]
     Active Substance: METAMIZOLE
     Dosage: 20 DROP, QID
  18. ATROVENT [Concomitant]
     Active Substance: IPRATROPIUM BROMIDE
     Dosage: 0.5 MG, QID (1?1?1?1)
     Route: 055
  19. PANTOPRAZOL [Concomitant]
     Active Substance: PANTOPRAZOLE SODIUM
     Dosage: 40 MG, AM (1?0?0?0)
  20. ROFLUMILAST. [Concomitant]
     Active Substance: ROFLUMILAST
     Dosage: 0.5 MG, AM (1?0?0?0)
  21. APIXABAN [Concomitant]
     Active Substance: APIXABAN
     Dosage: 2.5 MG, BID (1?0?1?0)
  22. ATORVASTATIN [Concomitant]
     Active Substance: ATORVASTATIN
     Dosage: 20 MG, DAILY (0?0?1?0)
  23. FUROSEMID                          /00032601/ [Suspect]
     Active Substance: FUROSEMIDE
     Dosage: 40 MG, UNK (1?1?0?0)
     Route: 065
  24. HYDROMORPHONE HYDROCHLORIDE. [Suspect]
     Active Substance: HYDROMORPHONE HYDROCHLORIDE
     Indication: PRODUCT USED FOR UNKNOWN INDICATION
     Dosage: 8 MG, BID (1?0?1?0)
     Route: 065
  25. FLUTIFORM [Concomitant]
     Active Substance: FLUTICASONE PROPIONATE\FORMOTEROL FUMARATE
     Dosage: 10 / 250 MCG, 2?0?2?0
     Route: 055
  26. DIGITOXIN [Concomitant]
     Active Substance: DIGITOXIN
     Dosage: 0.07 MG, DAILY (1?0?0?0)
  27. SPIRIVA [Concomitant]
     Active Substance: TIOTROPIUM BROMIDE MONOHYDRATE
     Dosage: 18 MCG, BID (1?0?1?0)
     Route: 055
  28. MIRTAZAPIN [Concomitant]
     Active Substance: MIRTAZAPINE
     Dosage: 15 MG, PM (0?0?0?1)
  29. PREDNISOLON                        /00016201/ [Concomitant]
     Active Substance: PREDNISOLONE
     Dosage: 10 MG, UNK (1?0?0.5?0)
  30. SANDOCAL?D [Concomitant]
     Dosage: UNK (1000|880 IE, 1?0?0?0)
  31. METOPROLOL. [Suspect]
     Active Substance: METOPROLOL
     Indication: PRODUCT USED FOR UNKNOWN INDICATION
     Dosage: 95 MG, BID (1?0?0?1)
     Route: 065
  32. ATROVENT [Concomitant]
     Active Substance: IPRATROPIUM BROMIDE
     Dosage: 15 UNK, TID (15 HUBE, 15?15?15?0)
     Route: 055
  33. FUROSEMID                          /00032601/ [Suspect]
     Active Substance: FUROSEMIDE
     Indication: PRODUCT USED FOR UNKNOWN INDICATION
     Dosage: 40 MG, UNK (2?2?0?0)
     Route: 065
  34. METOPROLOL. [Suspect]
     Active Substance: METOPROLOL
     Dosage: 95 MG, UNK (1?0?0.5?0)
     Route: 065
  35. FENTANYL. [Concomitant]
     Active Substance: FENTANYL
     Dosage: 0.0125 MC/H WECHSEL ALLE 3 D
     Route: 062
  36. LEVEMIR [Concomitant]
     Active Substance: INSULIN DETEMIR
     Dosage: NK IE, 20?0?15?0
  37. CINEOLE [Concomitant]
     Active Substance: EUCALYPTOL
     Dosage: 100 MG, UNK (2?0?2?0)

REACTIONS (6)
  - Hypocalcaemia [Unknown]
  - Drug prescribing error [Unknown]
  - Dyspnoea [Unknown]
  - Acute kidney injury [Unknown]
  - Chronic obstructive pulmonary disease [Unknown]
  - Tachypnoea [Unknown]
